FAERS Safety Report 25341937 (Version 1)
Quarter: 2025Q2

REPORT INFORMATION
  Report Type: Spontaneous
  Country: DE (occurrence: DE)
  Receive Date: 20250521
  Receipt Date: 20250521
  Transmission Date: 20250716
  Serious: Yes (Congenital Anomaly)
  Sender: TEVA
  Company Number: DE-EMB-M202004491-1

PATIENT
  Sex: Male
  Weight: 4.6 kg

DRUGS (4)
  1. OMEPRAZOLE [Suspect]
     Active Substance: OMEPRAZOLE
     Indication: Morning sickness
     Route: 064
  2. PANTOPRAZOLE [Suspect]
     Active Substance: PANTOPRAZOLE
     Indication: Morning sickness
     Route: 064
     Dates: start: 202004
  3. MECLIZINE HYDROCHLORIDE [Suspect]
     Active Substance: MECLIZINE HYDROCHLORIDE
     Indication: Morning sickness
     Route: 064
     Dates: start: 202004, end: 202005
  4. DIMENHYDRINATE [Suspect]
     Active Substance: DIMENHYDRINATE
     Indication: Morning sickness
     Route: 064

REACTIONS (3)
  - Renal fusion anomaly [Unknown]
  - Congenital eye disorder [Unknown]
  - Foetal exposure during pregnancy [Unknown]
